FAERS Safety Report 8507792-0 (Version None)
Quarter: 2012Q3

REPORT INFORMATION
  Report Type: 
  Country: None (occurrence: None)
  Receive Date: 20120713
  Receipt Date: 20120706
  Transmission Date: 20120928
  Serious: Yes (Hospitalization)
  Sender: FDA-Public Use
  Company Number: PHHY2011EC77212

PATIENT
  Sex: Female

DRUGS (2)
  1. ZOLEDRONOC ACID [Suspect]
     Dosage: 5 MG, 1 STAT YEARLY
     Route: 042
     Dates: start: 20101018
  2. ZOLEDRONOC ACID [Suspect]
     Indication: OSTEOPOROSIS
     Dosage: 5 MG, 1 STAT YEARLY
     Route: 042
     Dates: start: 20091018

REACTIONS (1)
  - VAGINAL HAEMORRHAGE [None]
